FAERS Safety Report 23404876 (Version 1)
Quarter: 2024Q1

REPORT INFORMATION
  Report Type: Spontaneous
  Country: US (occurrence: None)
  Receive Date: 20240112
  Receipt Date: 20240112
  Transmission Date: 20240409
  Serious: Yes (Other)
  Sender: FDA-Public Use
  Company Number: None

PATIENT
  Age: 22 Year
  Sex: Female
  Weight: 54 kg

DRUGS (5)
  1. JUVEDERM [Suspect]
     Active Substance: HYALURONIC ACID
     Indication: Product used for unknown indication
  2. BOTOX [Suspect]
     Active Substance: ONABOTULINUMTOXINA
  3. PLATELET RICH PLASMA [Suspect]
     Active Substance: PLATELET RICH PLASMA
  4. MIGRAINE MEDICINE [Concomitant]
  5. HERBAL NOS [Concomitant]
     Active Substance: HERBALS

REACTIONS (1)
  - Lip disorder [None]

NARRATIVE: CASE EVENT DATE: 20230109
